FAERS Safety Report 11441768 (Version 1)
Quarter: 2015Q3

REPORT INFORMATION
  Report Type: Spontaneous
  Country: US (occurrence: US)
  Receive Date: 20150901
  Receipt Date: 20150901
  Transmission Date: 20151125
  Serious: Yes (Other)
  Sender: FDA-Public Use
  Company Number: US-PFIZER INC-2015279037

PATIENT
  Age: 44 Year
  Sex: Female

DRUGS (2)
  1. LYRICA [Suspect]
     Active Substance: PREGABALIN
     Dosage: UNK
  2. NEURONTIN [Suspect]
     Active Substance: GABAPENTIN
     Indication: BACK PAIN
     Dosage: 300 MG, 1X/DAY

REACTIONS (12)
  - Total lung capacity decreased [Unknown]
  - Weight decreased [Unknown]
  - Eating disorder [Unknown]
  - Nausea [Unknown]
  - Constipation [Unknown]
  - Malaise [Unknown]
  - Pain [Unknown]
  - Spinal deformity [Unknown]
  - Abdominal discomfort [Unknown]
  - Diarrhoea [Unknown]
  - Back pain [Unknown]
  - Bone disorder [Unknown]
